FAERS Safety Report 6407757-9 (Version None)
Quarter: 2009Q4

REPORT INFORMATION
  Report Type: 
  Country: None (occurrence: None)
  Receive Date: 20091020
  Receipt Date: 20091006
  Transmission Date: 20100525
  Serious: Yes (Hospitalization)
  Sender: FDA-Public Use
  Company Number: GB-MYLANLABS-2009S1017556

PATIENT
  Age: 49 Year
  Sex: Female

DRUGS (5)
  1. LOSARTAN [Suspect]
     Indication: DRUG USE FOR UNKNOWN INDICATION
  2. METFORMIN [Suspect]
     Indication: TYPE 2 DIABETES MELLITUS
  3. ATENOLOL [Concomitant]
     Indication: DRUG USE FOR UNKNOWN INDICATION
  4. BENDROFLUMETHIAZIDE [Concomitant]
     Indication: DRUG USE FOR UNKNOWN INDICATION
  5. PROCHLORPERAZINE [Concomitant]
     Indication: VOMITING

REACTIONS (2)
  - LACTIC ACIDOSIS [None]
  - RENAL FAILURE ACUTE [None]
